FAERS Safety Report 8231064-5 (Version None)
Quarter: 2012Q1

REPORT INFORMATION
  Report Type: 
  Country: None (occurrence: None)
  Receive Date: 20120323
  Receipt Date: 20120320
  Transmission Date: 20120608
  Serious: Yes (Death, Hospitalization)
  Sender: FDA-Public Use
  Company Number: US-SANOFI-AVENTIS-2009SA007631

PATIENT
  Age: 82 Year
  Sex: Male
  Weight: 108.2 kg

DRUGS (17)
  1. DOCETAXEL [Suspect]
     Indication: PROSTATE CANCER
     Route: 041
     Dates: start: 20091012, end: 20091012
  2. LISINOPRIL [Concomitant]
  3. TYLENOL [Concomitant]
  4. CITALOPRAM HYDROBROMIDE [Concomitant]
  5. DOCETAXEL [Suspect]
     Route: 041
     Dates: start: 20091123, end: 20091123
  6. PREDNISONE TAB [Suspect]
     Indication: PROSTATE CANCER
     Route: 048
     Dates: start: 20091012, end: 20120204
  7. MELOXICAM [Concomitant]
  8. ALL OTHER THERAPEUTIC PRODUCTS [Concomitant]
  9. DOCETAXEL [Suspect]
     Route: 065
     Dates: end: 20100204
  10. BLINDED THERAPY [Suspect]
     Indication: PROSTATE CANCER
     Route: 048
     Dates: start: 20091012, end: 20091203
  11. SIMVASTATIN [Concomitant]
  12. ATENOLOL [Concomitant]
  13. CARDIZEM [Concomitant]
  14. COUMADIN [Concomitant]
  15. PROCHLORPERAZINE [Concomitant]
  16. DEXAMETHASONE [Suspect]
     Indication: PROSTATE CANCER
     Route: 065
     Dates: start: 20091012, end: 20091123
  17. DIGOXIN [Concomitant]

REACTIONS (5)
  - HYPERGLYCAEMIA [None]
  - NEOPLASM MALIGNANT [None]
  - URINARY TRACT INFECTION [None]
  - ATRIAL FIBRILLATION [None]
  - MYALGIA [None]
